FAERS Safety Report 12775447 (Version 4)
Quarter: 2016Q4

REPORT INFORMATION
  Report Type: Report from Study
  Country: US (occurrence: US)
  Receive Date: 20160923
  Receipt Date: 20161121
  Transmission Date: 20170207
  Serious: Yes (Hospitalization)
  Sender: FDA-Public Use
  Company Number: US-JNJFOC-20160915709

PATIENT
  Age: 18 Year
  Sex: Female
  Weight: 46.27 kg

DRUGS (1)
  1. REMICADE [Suspect]
     Active Substance: INFLIXIMAB
     Indication: INFLAMMATORY BOWEL DISEASE
     Route: 042
     Dates: start: 201505

REACTIONS (5)
  - Infectious mononucleosis [Recovered/Resolved]
  - Pancytopenia [Recovered/Resolved]
  - Ileus [Recovered/Resolved with Sequelae]
  - Hypokalaemia [Recovered/Resolved]
  - Pharyngitis streptococcal [Recovered/Resolved]

NARRATIVE: CASE EVENT DATE: 20160508
